FAERS Safety Report 20315686 (Version 3)
Quarter: 2024Q4

REPORT INFORMATION
  Report Type: Report from Study
  Country: US (occurrence: US)
  Receive Date: 20220110
  Receipt Date: 20241017
  Transmission Date: 20250115
  Serious: No
  Sender: ROCHE
  Company Number: US-ROCHE-2836015

PATIENT
  Age: 62 Year
  Sex: Male
  Weight: 49.9 kg

DRUGS (3)
  1. RITUXAN [Suspect]
     Active Substance: RITUXIMAB
     Indication: Multifocal motor neuropathy
     Route: 042
     Dates: start: 20230425
  2. RITUXAN [Suspect]
     Active Substance: RITUXIMAB
     Dosage: 1000 MG, IV 1 DAY, 1000 MG EVERY 2 WEEKS
     Route: 042
  3. HALOPERIDOL [Concomitant]
     Active Substance: HALOPERIDOL

REACTIONS (2)
  - Off label use [Unknown]
  - No adverse event [Unknown]

NARRATIVE: CASE EVENT DATE: 20230425
